FAERS Safety Report 20208601 (Version 1)
Quarter: 2021Q4

REPORT INFORMATION
  Report Type: Spontaneous
  Country: US (occurrence: US)
  Receive Date: 20211220
  Receipt Date: 20211220
  Transmission Date: 20220303
  Serious: Yes (Other)
  Sender: FDA-Public Use
  Company Number: US-PFIZER INC-202101757743

PATIENT
  Age: 28 Year
  Sex: Female

DRUGS (9)
  1. DIAZEPAM [Suspect]
     Active Substance: DIAZEPAM
     Dosage: UNK
  2. CODEINE [Suspect]
     Active Substance: CODEINE
     Dosage: UNK
  3. CLONIDINE [Suspect]
     Active Substance: CLONIDINE
     Dosage: 0.2 MG, AS NEEDED
  4. COCAINE [Suspect]
     Active Substance: COCAINE
     Dosage: UNK
  5. ETHCHLORVYNOL [Suspect]
     Active Substance: ETHCHLORVYNOL
     Dosage: UNK
  6. METHADONE [Suspect]
     Active Substance: METHADONE HYDROCHLORIDE
     Dosage: UNK
  7. PROPOXYPHENE [Suspect]
     Active Substance: PROPOXYPHENE
     Dosage: UNK
  8. SECOBARBITAL [Suspect]
     Active Substance: SECOBARBITAL
     Dosage: UNK
  9. METHAQUALONE [Suspect]
     Active Substance: METHAQUALONE
     Dosage: UNK

REACTIONS (1)
  - Drug abuse [Unknown]
